FAERS Safety Report 10529773 (Version 2)
Quarter: 2014Q4

REPORT INFORMATION
  Report Type: Spontaneous
  Country: US (occurrence: None)
  Receive Date: 20141017
  Receipt Date: 20141028
  Transmission Date: 20150528
  Serious: Yes (Other)
  Sender: FDA-Public Use
  Company Number: US-001330

PATIENT
  Age: 61 Year
  Sex: Female

DRUGS (2)
  1. SOLUTIONS FOR PARENTERAL NUTRION(UKNOWN UNTILLUKNOWN) [Concomitant]
  2. GATTEX [Suspect]
     Active Substance: TEDUGLUTIDE\WATER
     Indication: SHORT-BOWEL SYNDROME
     Dosage: DF SUBCUTANEOUS
     Route: 058

REACTIONS (3)
  - Lung carcinoma cell type unspecified stage IV [None]
  - Neoplasm malignant [None]
  - Diarrhoea [None]

NARRATIVE: CASE EVENT DATE: 201408
